FAERS Safety Report 9614280 (Version 1)
Quarter: 2013Q4

REPORT INFORMATION
  Report Type: Spontaneous
  Country: US (occurrence: US)
  Receive Date: 20131011
  Receipt Date: 20131011
  Transmission Date: 20140711
  Serious: Yes (Hospitalization)
  Sender: FDA-Public Use
  Company Number: US-009507513-1310USA002637

PATIENT
  Age: 40 Year
  Sex: Female

DRUGS (5)
  1. INTRONA [Suspect]
     Indication: MALIGNANT MELANOMA
     Dosage: UNK, Q5D (5 TIMES A DAY THEN 3 TIMES A WEEK)
     Dates: start: 201207
  2. INTRONA [Suspect]
     Dosage: UNK, Q3W  (5 TIMES A DAY THEN 3 TIMES A WEEK)
     Dates: end: 201303
  3. BENADRYL [Concomitant]
  4. ATIVAN [Concomitant]
  5. FLUOXETINE [Concomitant]

REACTIONS (4)
  - Pain [Recovered/Resolved with Sequelae]
  - Migraine [Recovered/Resolved with Sequelae]
  - Vomiting [Recovered/Resolved with Sequelae]
  - Suicidal ideation [Recovered/Resolved with Sequelae]
